FAERS Safety Report 6626139-8 (Version None)
Quarter: 2010Q1

REPORT INFORMATION
  Report Type: 
  Country: None (occurrence: None)
  Receive Date: 20100310
  Receipt Date: 20100225
  Transmission Date: 20100710
  Serious: Yes (Other)
  Sender: FDA-Public Use
  Company Number: PHHY2008BR06966

PATIENT
  Age: 53 Year
  Sex: Female
  Weight: 69.7 kg

DRUGS (5)
  1. TRILEPTAL [Suspect]
     Indication: BIPOLAR DISORDER
     Dosage: 300 MG, UNK
     Route: 048
     Dates: start: 20080201
  2. TRILEPTAL [Suspect]
     Dosage: 2 TABLET PER DAY
     Route: 048
     Dates: start: 20080425
  3. TRILEPTAL [Suspect]
     Dosage: 1 TABLETS PER DAY
     Route: 048
  4. TRILEPTAL [Suspect]
     Dosage: 2 TAB/DAY
     Route: 048
  5. DEPAKOTE [Concomitant]
     Dosage: 500 MG

REACTIONS (22)
  - ABDOMINAL PAIN [None]
  - ABNORMAL BEHAVIOUR [None]
  - AGITATION [None]
  - APATHY [None]
  - BALANCE DISORDER [None]
  - CRYING [None]
  - DEPRESSION [None]
  - DIARRHOEA [None]
  - DISTURBANCE IN ATTENTION [None]
  - FEAR [None]
  - FEELING ABNORMAL [None]
  - HAEMATOMA [None]
  - HYPOTONIA [None]
  - LISTLESS [None]
  - MEMORY IMPAIRMENT [None]
  - NAUSEA [None]
  - PAIN [None]
  - POLLAKIURIA [None]
  - ROAD TRAFFIC ACCIDENT [None]
  - SOMNOLENCE [None]
  - URINARY INCONTINENCE [None]
  - WOUND [None]
